FAERS Safety Report 11310988 (Version 10)
Quarter: 2016Q3

REPORT INFORMATION
  Report Type: Report from Study
  Country: IT (occurrence: IT)
  Receive Date: 20150727
  Receipt Date: 20160912
  Transmission Date: 20161109
  Serious: Yes (Other)
  Sender: FDA-Public Use
  Company Number: IT-ROCHE-1612452

PATIENT
  Age: 81 Year
  Sex: Male

DRUGS (1)
  1. VEMURAFENIB [Suspect]
     Active Substance: VEMURAFENIB
     Indication: MALIGNANT MELANOMA
     Dosage: 240 MG -BLISTER PACK (ALU/ALU) 56 TABLETS
     Route: 048
     Dates: start: 20150312, end: 20150625

REACTIONS (3)
  - Depression [Not Recovered/Not Resolved]
  - Hypertensive cardiomyopathy [Not Recovered/Not Resolved]
  - Skin papilloma [Not Recovered/Not Resolved]

NARRATIVE: CASE EVENT DATE: 20150625
